FAERS Safety Report 20210329 (Version 1)
Quarter: 2021Q4

REPORT INFORMATION
  Report Type: Report from Study
  Country: TW (occurrence: TW)
  Receive Date: 20211221
  Receipt Date: 20211221
  Transmission Date: 20220303
  Serious: Yes (Hospitalization)
  Sender: FDA-Public Use
  Company Number: TW-ABBVIE-21K-153-4201722-00

PATIENT
  Age: 72 Year
  Sex: Male
  Weight: 40.4 kg

DRUGS (5)
  1. HUMIRA [Suspect]
     Active Substance: ADALIMUMAB
     Indication: Rheumatoid arthritis
     Route: 058
     Dates: start: 20180327, end: 20211110
  2. HUMIRA [Suspect]
     Active Substance: ADALIMUMAB
     Indication: Rheumatoid arthritis
     Route: 058
     Dates: start: 20100923
  3. ARHEUMA [Concomitant]
     Indication: Rheumatoid arthritis
     Route: 048
     Dates: start: 20210705
  4. PREDONINE [Concomitant]
     Active Substance: PREDNISOLONE
     Indication: Rheumatoid arthritis
     Route: 048
     Dates: start: 20210607
  5. CELEBREX [Concomitant]
     Active Substance: CELECOXIB
     Indication: Rheumatoid arthritis
     Route: 048
     Dates: start: 20210607

REACTIONS (15)
  - Systemic inflammatory response syndrome [Unknown]
  - Pneumonia [Recovered/Resolved]
  - Haemoptysis [Unknown]
  - Klebsiella infection [Unknown]
  - Citrobacter infection [Unknown]
  - Streptococcal infection [Unknown]
  - Candida infection [Unknown]
  - Candida infection [Unknown]
  - Dyspnoea [Unknown]
  - Pleural effusion [Unknown]
  - Rales [Unknown]
  - Cardiac murmur [Unknown]
  - Leukocytosis [Unknown]
  - C-reactive protein increased [Unknown]
  - Blood creatinine increased [Unknown]

NARRATIVE: CASE EVENT DATE: 20211123
